FAERS Safety Report 8084164-7 (Version None)
Quarter: 2012Q1

REPORT INFORMATION
  Report Type: 
  Country: None (occurrence: None)
  Receive Date: 20120128
  Receipt Date: 20110114
  Transmission Date: 20120608
  Serious: No
  Sender: FDA-Public Use
  Company Number: US-ABBOTT-11P-163-0699360-00

PATIENT
  Sex: Female

DRUGS (7)
  1. ADVAIR DISKUS 100/50 [Concomitant]
     Indication: PRODUCT USED FOR UNKNOWN INDICATION
     Dosage: 500
  2. HUMIRA [Suspect]
     Dates: start: 20101001, end: 20101227
  3. CYMBALTA [Concomitant]
     Indication: PRODUCT USED FOR UNKNOWN INDICATION
  4. ASPIRIN [Concomitant]
     Indication: PRODUCT USED FOR UNKNOWN INDICATION
  5. COMBIVENT [Concomitant]
     Indication: PRODUCT USED FOR UNKNOWN INDICATION
     Route: 055
  6. HUMIRA [Suspect]
     Indication: RHEUMATOID ARTHRITIS
     Dates: start: 20100701, end: 20101001
  7. TRAZODONE HCL [Concomitant]
     Indication: INSOMNIA

REACTIONS (21)
  - MUSCLE SPASMS [None]
  - OXYGEN SATURATION DECREASED [None]
  - FEELING HOT [None]
  - WEIGHT DECREASED [None]
  - DIZZINESS [None]
  - CONSTIPATION [None]
  - VISUAL IMPAIRMENT [None]
  - DECREASED APPETITE [None]
  - RASH PAPULAR [None]
  - NAUSEA [None]
  - BACK PAIN [None]
  - VOMITING [None]
  - DYSPNOEA [None]
  - PAIN [None]
  - DIARRHOEA [None]
  - TOTAL LUNG CAPACITY ABNORMAL [None]
  - TREMOR [None]
  - MYALGIA [None]
  - GASTROOESOPHAGEAL REFLUX DISEASE [None]
  - HYPERHIDROSIS [None]
  - ARTHRALGIA [None]
